FAERS Safety Report 14242725 (Version 2)
Quarter: 2018Q1

REPORT INFORMATION
  Report Type: Spontaneous
  Country: US (occurrence: US)
  Receive Date: 20171201
  Receipt Date: 20180116
  Transmission Date: 20180508
  Serious: Yes (Hospitalization, Other)
  Sender: FDA-Public Use
  Company Number: US-NAPPMUNDI-USA-2017-0141742

PATIENT
  Age: 33 Year
  Sex: Female

DRUGS (1)
  1. OXYCODONE HYDROCHLORIDE (SIMILAR TO NDA 22-272) [Suspect]
     Active Substance: OXYCODONE HYDROCHLORIDE
     Indication: PRODUCT USED FOR UNKNOWN INDICATION
     Dosage: UNK
     Route: 048

REACTIONS (5)
  - Pneumonia aspiration [Unknown]
  - Hypoxic-ischaemic encephalopathy [Recovered/Resolved with Sequelae]
  - Sepsis [Unknown]
  - Overdose [Recovered/Resolved with Sequelae]
  - Respiratory failure [Recovered/Resolved]
